FAERS Safety Report 17349351 (Version 1)
Quarter: 2020Q1

REPORT INFORMATION
  Report Type: Spontaneous
  Country: US (occurrence: US)
  Receive Date: 20200130
  Receipt Date: 20200130
  Transmission Date: 20200409
  Serious: Yes (Other)
  Sender: FDA-Public Use
  Company Number: US-AUROBINDO-AUR-APL-2019-021138

PATIENT

DRUGS (4)
  1. CYMBALTA [Concomitant]
     Active Substance: DULOXETINE HYDROCHLORIDE
     Indication: NEURALGIA
     Dosage: UNK
     Route: 065
     Dates: start: 201604
  2. DULOXETINE DELAYED-RELEASE CAPSULES USP 60 MG [Suspect]
     Active Substance: DULOXETINE HYDROCHLORIDE
     Indication: ARTHRALGIA
     Dosage: 60 MILLIGRAM, DAILY
     Route: 048
     Dates: start: 201604
  3. DULOXETINE DELAYED-RELEASE CAPSULES USP 60 MG [Suspect]
     Active Substance: DULOXETINE HYDROCHLORIDE
     Indication: PAIN IN EXTREMITY
     Dosage: 30 MILLIGRAM, DAILY
     Route: 048
     Dates: end: 20190520
  4. CYMBALTA [Concomitant]
     Active Substance: DULOXETINE HYDROCHLORIDE
     Indication: ANXIETY

REACTIONS (7)
  - Amnesia [Not Recovered/Not Resolved]
  - Visual impairment [Unknown]
  - Loss of consciousness [Unknown]
  - Concussion [Recovered/Resolved]
  - Sensory disturbance [Unknown]
  - Anxiety [Unknown]
  - Arthralgia [Not Recovered/Not Resolved]
